FAERS Safety Report 8161381-9 (Version None)
Quarter: 2012Q1

REPORT INFORMATION
  Report Type: 
  Country: None (occurrence: None)
  Receive Date: 20120222
  Receipt Date: 20120222
  Transmission Date: 20120608
  Serious: No
  Sender: FDA-Public Use
  Company Number: None

PATIENT
  Age: 77 Year
  Sex: Male
  Weight: 59 kg

DRUGS (1)
  1. LENALIDOMIDE [Suspect]
     Indication: MULTIPLE MYELOMA
     Dosage: 15 MG EVERY DAY PO
     Route: 048
     Dates: start: 20120110, end: 20120120

REACTIONS (4)
  - FATIGUE [None]
  - HYPOTENSION [None]
  - OEDEMA PERIPHERAL [None]
  - ANAEMIA [None]
